FAERS Safety Report 9205162 (Version 1)
Quarter: 2013Q2

REPORT INFORMATION
  Report Type: Spontaneous
  Country: US (occurrence: None)
  Receive Date: 20130401
  Receipt Date: 20130401
  Transmission Date: 20140414
  Serious: Yes (Other)
  Sender: FDA-Public Use
  Company Number: None

PATIENT
  Age: 35 Year
  Sex: Female
  Weight: 47.7 kg

DRUGS (1)
  1. MIRENA IUD [Suspect]
     Indication: CONTRACEPTION
     Dates: start: 20121003

REACTIONS (7)
  - Nausea [None]
  - Headache [None]
  - Dizziness [None]
  - Asthenia [None]
  - Feeling of body temperature change [None]
  - Malaise [None]
  - Weight abnormal [None]
